FAERS Safety Report 7864428-X (Version None)
Quarter: 2011Q4

REPORT INFORMATION
  Report Type: 
  Country: None (occurrence: None)
  Receive Date: 20111028
  Receipt Date: 20111019
  Transmission Date: 20120403
  Serious: Yes (Hospitalization)
  Sender: FDA-Public Use
  Company Number: US-PFIZER INC-2011253760

PATIENT
  Sex: Male
  Weight: 106.6 kg

DRUGS (11)
  1. FLUOROURACIL [Suspect]
     Indication: COLORECTAL CANCER METASTATIC
     Dosage: 400 MG/M2, ON DAY 1 EVERY 14 DAYS
     Dates: start: 20110928
  2. DIPHENOXYLATE HYDROCHLORIDE [Concomitant]
     Dosage: UNK
  3. LEUCOVORIN CALCIUM [Suspect]
     Indication: COLORECTAL CANCER METASTATIC
     Dosage: 400 MG/M2, DAY 1 EVERY 14 DAYS
     Route: 042
     Dates: start: 20110928
  4. FLUOROURACIL [Suspect]
     Dosage: 2400 MG/M2, ON DAY 1 AND 2 EVERY 14 DAYS
     Route: 042
     Dates: start: 20110928
  5. ATROPINE SULFATE [Concomitant]
     Dosage: UNK
  6. PROMETHAZINE [Concomitant]
     Dosage: UNK
     Dates: start: 20111003
  7. BLINDED THERAPY [Suspect]
     Indication: COLORECTAL CANCER METASTATIC
     Dosage: EVERY 14 DAYS
     Route: 042
     Dates: start: 20110928
  8. IRINOTECAN HCL [Suspect]
     Indication: COLORECTAL CANCER METASTATIC
     Dosage: 180 MG/M2, DAY 1 EVERY 14 DAYS
     Route: 042
     Dates: start: 20110928
  9. FENTANYL [Concomitant]
     Dosage: UNK
     Dates: start: 20110919
  10. HYDROCODONE [Concomitant]
     Dosage: UNK
     Dates: start: 20110819
  11. ONDANSETRON HYDROCHLORIDE [Concomitant]
     Dosage: UNK
     Dates: start: 20110916

REACTIONS (2)
  - RENAL FAILURE ACUTE [None]
  - HYPOVOLAEMIC SHOCK [None]
